FAERS Safety Report 4677822-5 (Version None)
Quarter: 2005Q2

REPORT INFORMATION
  Report Type: 
  Country: None (occurrence: None)
  Receive Date: 20050531
  Receipt Date: 20050426
  Transmission Date: 20051028
  Serious: Yes (Disabling)
  Sender: FDA-Public Use
  Company Number: JP-BRISTOL-MYERS SQUIBB COMPANY-12947461

PATIENT
  Age: 64 Year
  Sex: Female

DRUGS (9)
  1. PARAPLATIN [Suspect]
     Indication: GUM NEOPLASM MALIGNANT STAGE UNSPECIFIED
     Route: 013
     Dates: start: 20020529, end: 20020529
  2. IOPAMIDOL [Concomitant]
     Route: 013
     Dates: start: 20020529, end: 20020529
  3. INDIGO CARMINE [Concomitant]
     Route: 013
     Dates: start: 20020529, end: 20020529
  4. HEPARIN SODIUM [Concomitant]
     Route: 042
     Dates: start: 20020529, end: 20020529
  5. PENTAZOCINE LACTATE [Concomitant]
     Route: 013
     Dates: start: 20020529, end: 20020529
  6. ATARAX [Concomitant]
     Route: 013
     Dates: start: 20020529, end: 20020529
  7. CEFMETAZON [Concomitant]
     Route: 041
     Dates: start: 20020529, end: 20020531
  8. SEROTONE [Concomitant]
     Route: 041
     Dates: start: 20020529, end: 20020529
  9. SOLU-MEDROL [Concomitant]
     Route: 042
     Dates: start: 20020529, end: 20020529

REACTIONS (2)
  - DYSPNOEA [None]
  - OSTEONECROSIS [None]
